FAERS Safety Report 5908725-3 (Version None)
Quarter: 2008Q4

REPORT INFORMATION
  Report Type: 
  Country: None (occurrence: None)
  Receive Date: 20081006
  Receipt Date: 20081001
  Transmission Date: 20090506
  Serious: Yes (Hospitalization)
  Sender: FDA-Public Use
  Company Number: B0538120A

PATIENT
  Age: 52 Year
  Sex: Male
  Weight: 65.7 kg

DRUGS (4)
  1. KIVEXA [Suspect]
     Indication: HIV INFECTION
     Dosage: 1TAB PER DAY
     Route: 048
     Dates: start: 20080912
  2. BLINDED TRIAL MEDICATION [Suspect]
     Indication: HIV INFECTION
     Route: 048
     Dates: start: 20080912
  3. NORCO [Concomitant]
     Dosage: 1TAB AS REQUIRED
     Route: 048
  4. BACTRIM [Concomitant]
     Indication: PROPHYLAXIS
     Dosage: 800MG PER DAY
     Route: 048

REACTIONS (5)
  - BLOOD BILIRUBIN INCREASED [None]
  - DEHYDRATION [None]
  - HEADACHE [None]
  - MYALGIA [None]
  - VOMITING [None]
